FAERS Safety Report 9370256 (Version 2)
Quarter: 2015Q1

REPORT INFORMATION
  Report Type: Spontaneous
  Country: US (occurrence: US)
  Receive Date: 20130626
  Receipt Date: 20150216
  Transmission Date: 20150721
  Serious: Yes (Other)
  Sender: FDA-Public Use
  Company Number: US-ASTRAZENECA-2013SE47052

PATIENT
  Age: 58 Year
  Sex: Female
  Weight: 73.9 kg

DRUGS (8)
  1. NEXIUM [Suspect]
     Active Substance: ESOMEPRAZOLE MAGNESIUM
     Route: 048
  2. NEXIUM [Suspect]
     Active Substance: ESOMEPRAZOLE MAGNESIUM
     Indication: GASTROOESOPHAGEAL REFLUX DISEASE
     Route: 048
  3. SYNTHROID [Concomitant]
     Active Substance: LEVOTHYROXINE SODIUM
     Indication: HYPOTHYROIDISM
     Route: 048
     Dates: start: 2005
  4. LORAZEPAM. [Concomitant]
     Active Substance: LORAZEPAM
     Indication: ANXIETY
     Route: 048
  5. C-PROGESTRONE 50 [Concomitant]
     Indication: HORMONE THERAPY
     Route: 061
  6. OTHER DRUGS [Concomitant]
     Active Substance: UNSPECIFIED INGREDIENT
  7. NEXIUM [Suspect]
     Active Substance: ESOMEPRAZOLE MAGNESIUM
     Indication: GASTROOESOPHAGEAL REFLUX DISEASE
     Route: 048
     Dates: start: 2011
  8. ESTRADIOL. [Concomitant]
     Active Substance: ESTRADIOL
     Indication: HORMONE THERAPY
     Route: 061

REACTIONS (19)
  - Abdominal pain upper [Unknown]
  - Diarrhoea [Unknown]
  - Intentional product misuse [Unknown]
  - Flatulence [Unknown]
  - Haematochezia [Unknown]
  - Faeces hard [Unknown]
  - Haemorrhoids [Unknown]
  - Abdominal distension [Unknown]
  - Drug ineffective [Unknown]
  - Rectal fissure [Unknown]
  - Cough [Unknown]
  - Constipation [Unknown]
  - Mucous stools [Unknown]
  - Abnormal faeces [Unknown]
  - Musculoskeletal discomfort [Unknown]
  - Eructation [Unknown]
  - Vomiting [Unknown]
  - Cold sweat [Unknown]
  - Back pain [Unknown]
